FAERS Safety Report 7082800-5 (Version None)
Quarter: 2010Q4

REPORT INFORMATION
  Report Type: 
  Country: None (occurrence: None)
  Receive Date: 20101104
  Receipt Date: 20101026
  Transmission Date: 20110411
  Serious: Yes (Hospitalization, Other)
  Sender: FDA-Public Use
  Company Number: BR-ABBOTT-10P-020-0679416-00

PATIENT
  Sex: Female
  Weight: 78 kg

DRUGS (12)
  1. HUMIRA [Suspect]
     Indication: RHEUMATOID ARTHRITIS
     Route: 058
     Dates: start: 20061207
  2. METHOTREXATE [Concomitant]
     Indication: RHEUMATOID ARTHRITIS
     Route: 048
  3. NAPROXEN [Concomitant]
     Indication: PAIN
     Route: 048
     Dates: end: 20101016
  4. NAPROXEN [Concomitant]
     Indication: ARTHRITIS
  5. ASPIRIN [Concomitant]
     Indication: ISCHAEMIC HEART DISEASE PROPHYLAXIS
     Route: 048
  6. OMEPRAZOLE [Concomitant]
     Indication: PROPHYLAXIS AGAINST GASTROINTESTINAL ULCER
     Route: 048
  7. ENDOFOLIN [Concomitant]
     Indication: PROPHYLAXIS
     Route: 048
  8. ENDOFOLIN [Concomitant]
  9. ENDOFOLIN [Concomitant]
     Indication: LIVER DISORDER
  10. ENDOFOLIN [Concomitant]
     Indication: RENAL DISORDER
  11. ARTROLIVE [Concomitant]
     Indication: CHONDROPATHY
     Dosage: GLUCOSAMINE SULFATE 500MG; CHONDROITIN SULFATE 400MG
     Route: 048
  12. PROPINOL [Concomitant]
     Indication: HYPOTHYROIDISM
     Dosage: 50 MG OR 10 MG, 8 IN 24 HOURS
     Route: 048
     Dates: start: 20071001

REACTIONS (10)
  - ARTHRALGIA [None]
  - AUTOIMMUNE THYROIDITIS [None]
  - EYE SWELLING [None]
  - GASTRITIS [None]
  - GASTROOESOPHAGEAL REFLUX DISEASE [None]
  - HYPOTHYROIDISM [None]
  - INJECTION SITE ERYTHEMA [None]
  - INJECTION SITE PRURITUS [None]
  - INJECTION SITE WARMTH [None]
  - THYROID FUNCTION TEST ABNORMAL [None]
